FAERS Safety Report 18321911 (Version 1)
Quarter: 2020Q3

REPORT INFORMATION
  Report Type: Spontaneous
  Country: US (occurrence: US)
  Receive Date: 20200928
  Receipt Date: 20200928
  Transmission Date: 20201103
  Serious: Yes (Hospitalization)
  Sender: FDA-Public Use
  Company Number: None

PATIENT
  Age: 19 Year
  Sex: Female

DRUGS (11)
  1. CIPROFLOXACN [Concomitant]
     Active Substance: CIPROFLOXACIN
  2. NITROFURANTIN [Concomitant]
     Active Substance: NITROFURANTOIN
  3. TOLTERODINE [Concomitant]
     Active Substance: TOLTERODINE
  4. MERCAPTOPUR [Concomitant]
  5. SERTRALINE [Concomitant]
     Active Substance: SERTRALINE HYDROCHLORIDE
  6. OMEPRAZOLE. [Concomitant]
     Active Substance: OMEPRAZOLE
  7. OXYBUTYNIN. [Concomitant]
     Active Substance: OXYBUTYNIN CHLORIDE
  8. HUMIRA [Suspect]
     Active Substance: ADALIMUMAB
     Indication: CROHN^S DISEASE
     Route: 058
     Dates: start: 20190412
  9. FLUCONAZOLE. [Concomitant]
     Active Substance: FLUCONAZOLE
  10. BACITR ZINE [Concomitant]
  11. SOLIFENACIN [Concomitant]
     Active Substance: SOLIFENACIN

REACTIONS (2)
  - Spinal operation [None]
  - Therapy interrupted [None]

NARRATIVE: CASE EVENT DATE: 20200924
